FAERS Safety Report 7927567-0 (Version None)
Quarter: 2011Q4

REPORT INFORMATION
  Report Type: 
  Country: None (occurrence: None)
  Receive Date: 20111118
  Receipt Date: 20111114
  Transmission Date: 20120403
  Serious: Yes (Hospitalization, Other)
  Sender: FDA-Public Use
  Company Number: US-SANOFI-AVENTIS-2011SA074814

PATIENT
  Age: 58 Year
  Sex: Male

DRUGS (4)
  1. NOVOLOG [Concomitant]
  2. ORAL ANTIDIABETICS [Concomitant]
  3. LANTUS [Suspect]
     Indication: TYPE 2 DIABETES MELLITUS
     Dosage: DOSE:60 UNIT(S)
     Route: 058
  4. SOLOSTAR [Suspect]
     Indication: TYPE 2 DIABETES MELLITUS

REACTIONS (2)
  - MYOCARDIAL INFARCTION [None]
  - CORONARY ARTERY BYPASS [None]
